APPROVED DRUG PRODUCT: PROTOPIC
Active Ingredient: TACROLIMUS
Strength: 0.1%
Dosage Form/Route: OINTMENT;TOPICAL
Application: N050777 | Product #002 | TE Code: AB
Applicant: LEO PHARMA AS
Approved: Dec 8, 2000 | RLD: Yes | RS: Yes | Type: RX